FAERS Safety Report 12891528 (Version 2)
Quarter: 2016Q4

REPORT INFORMATION
  Report Type: Spontaneous
  Country: IN (occurrence: IN)
  Receive Date: 20161028
  Receipt Date: 20161108
  Transmission Date: 20170207
  Serious: Yes (Other)
  Sender: FDA-Public Use
  Company Number: IN-LUPIN PHARMACEUTICALS INC.-2016-00101

PATIENT
  Age: 23 Year
  Sex: Female

DRUGS (2)
  1. CEFANTRAL [Suspect]
     Active Substance: CEFOTAXIME SODIUM
     Route: 042
     Dates: start: 20151230
  2. CEFANTRAL [Suspect]
     Active Substance: CEFOTAXIME SODIUM
     Indication: PROPHYLAXIS
     Route: 065
     Dates: start: 20151230, end: 20151230

REACTIONS (5)
  - Anaphylactic reaction [Recovered/Resolved]
  - Exposure during pregnancy [Unknown]
  - Angioedema [Recovered/Resolved]
  - Hypotension [Recovered/Resolved]
  - Pruritus [Recovered/Resolved]
